FAERS Safety Report 13878964 (Version 2)
Quarter: 2017Q3

REPORT INFORMATION
  Report Type: Spontaneous
  Country: CA (occurrence: CA)
  Receive Date: 20170817
  Receipt Date: 20170831
  Transmission Date: 20171127
  Serious: Yes (Other)
  Sender: FDA-Public Use
  Company Number: CA-SA-2017SA134394

PATIENT
  Sex: Male

DRUGS (11)
  1. PENICILLIN [Suspect]
     Active Substance: PENICILLIN
     Route: 065
  2. HYDROXYCHLOROQUINE [Suspect]
     Active Substance: HYDROXYCHLOROQUINE
     Route: 048
  3. LEFLUNOMIDE. [Suspect]
     Active Substance: LEFLUNOMIDE
     Dosage: 2004
     Route: 048
     Dates: start: 200404
  4. PLAQUENIL [Suspect]
     Active Substance: HYDROXYCHLOROQUINE SULFATE
     Route: 048
  5. ENBREL [Suspect]
     Active Substance: ETANERCEPT
     Indication: RHEUMATOID ARTHRITIS
     Route: 065
  6. METHOTREXATE. [Suspect]
     Active Substance: METHOTREXATE
     Indication: RHEUMATOID ARTHRITIS
     Route: 065
  7. HUMIRA [Suspect]
     Active Substance: ADALIMUMAB
     Route: 065
  8. PREGABALIN. [Concomitant]
     Active Substance: PREGABALIN
     Route: 065
  9. LEFLUNOMIDE. [Suspect]
     Active Substance: LEFLUNOMIDE
     Dosage: 2004
     Route: 048
  10. ASPIRIN. [Suspect]
     Active Substance: ASPIRIN
     Route: 065
  11. TYLENOL [Concomitant]
     Active Substance: ACETAMINOPHEN
     Route: 065

REACTIONS (6)
  - Drug hypersensitivity [Unknown]
  - Drug intolerance [Unknown]
  - Sleep disorder due to general medical condition, insomnia type [Unknown]
  - White blood cell count decreased [Unknown]
  - Rheumatoid arthritis [Unknown]
  - Chest discomfort [Unknown]
